FAERS Safety Report 7470914-7 (Version None)
Quarter: 2011Q2

REPORT INFORMATION
  Report Type: 
  Country: None (occurrence: None)
  Receive Date: 20110510
  Receipt Date: 20110428
  Transmission Date: 20111010
  Serious: Yes (Hospitalization, Other)
  Sender: FDA-Public Use
  Company Number: JP-CEPHALON-2011001243

PATIENT
  Age: 66 Year
  Sex: Male

DRUGS (7)
  1. TRIMETHOPRIM [Concomitant]
     Dates: start: 20110224, end: 20110225
  2. RITUXIMAB [Concomitant]
     Dates: start: 20110223, end: 20110223
  3. TREANDA [Suspect]
     Indication: NON-HODGKIN'S LYMPHOMA RECURRENT
     Route: 041
     Dates: start: 20110224, end: 20110224
  4. URSODIOL [Concomitant]
     Dates: start: 20110224, end: 20110225
  5. LANSOPRAZOLE [Concomitant]
     Dates: start: 20110224, end: 20110225
  6. GRANISETRON HCL [Concomitant]
     Dates: start: 20110224, end: 20110225
  7. SULFAMETHOXAZOLE [Concomitant]
     Dates: start: 20110224, end: 20110225

REACTIONS (4)
  - PSEUDOMEMBRANOUS COLITIS [None]
  - CYTOMEGALOVIRUS ENTEROCOLITIS [None]
  - LYMPHOCYTE COUNT DECREASED [None]
  - VASCULITIS [None]
